FAERS Safety Report 10256150 (Version 1)
Quarter: 2014Q2

REPORT INFORMATION
  Report Type: Spontaneous
  Country: US (occurrence: US)
  Receive Date: 20140624
  Receipt Date: 20140624
  Transmission Date: 20141212
  Serious: No
  Sender: FDA-Public Use
  Company Number: US-ZOGENIX, INC.-2012ZX000044

PATIENT
  Age: 41 Year
  Sex: Female
  Weight: 129.39 kg

DRUGS (1)
  1. SUMAVEL DOSEPRO [Suspect]
     Indication: MIGRAINE
     Dates: start: 20120126

REACTIONS (1)
  - Injection site pain [Recovered/Resolved]
